FAERS Safety Report 23831656 (Version 1)
Quarter: 2024Q2

REPORT INFORMATION
  Report Type: Spontaneous
  Country: US (occurrence: None)
  Receive Date: 20240507
  Receipt Date: 20240507
  Transmission Date: 20240716
  Serious: Yes (Other)
  Sender: FDA-Public Use
  Company Number: None

PATIENT
  Age: 71 Year
  Sex: Male
  Weight: 95.85 kg

DRUGS (7)
  1. REVLIMID [Suspect]
     Active Substance: LENALIDOMIDE
     Indication: Follicular lymphoma
     Dosage: OTHER FREQUENCY : 1QD X21D OFF 7D;?
     Route: 048
     Dates: start: 20240328
  2. ELIQUIS [Concomitant]
     Active Substance: APIXABAN
  3. VICODIN [Concomitant]
     Active Substance: ACETAMINOPHEN\HYDROCODONE BITARTRATE
  4. LOSARTAN [Concomitant]
     Active Substance: LOSARTAN
  5. PREDNISONE [Concomitant]
     Active Substance: PREDNISONE
  6. VALIUM [Concomitant]
     Active Substance: DIAZEPAM
  7. RITUXIMAB [Suspect]
     Active Substance: RITUXIMAB

REACTIONS (3)
  - Rash [None]
  - Dizziness [None]
  - Chills [None]
